FAERS Safety Report 6906804-5 (Version None)
Quarter: 2010Q3

REPORT INFORMATION
  Report Type: 
  Country: None (occurrence: None)
  Receive Date: 20100804
  Receipt Date: 20100726
  Transmission Date: 20110219
  Serious: Yes (Hospitalization, Other)
  Sender: FDA-Public Use
  Company Number: PHHY2010US42419

PATIENT
  Sex: Female

DRUGS (22)
  1. EXTAVIA [Suspect]
     Indication: MULTIPLE SCLEROSIS
     Dosage: UNK
     Route: 058
     Dates: start: 20050101
  2. EXTAVIA [Suspect]
     Dosage: 0.25 MG, QOD
     Route: 058
     Dates: start: 20100521
  3. EXTAVIA [Suspect]
     Dosage: 0.187 MG, QOD
     Route: 058
     Dates: start: 20100702
  4. EXTAVIA [Suspect]
     Dosage: 0.25 MG, QOD
     Route: 058
  5. STEROIDS NOS [Suspect]
     Dosage: UNK
     Route: 042
  6. ATENOLOL [Concomitant]
  7. LISINOPRIL [Concomitant]
  8. HYDROCHLOROTHIAZIDE [Concomitant]
     Dosage: UNK
  9. ADVAIR DISKUS 100/50 [Concomitant]
  10. ALBUTEROL [Concomitant]
  11. CALCIUM CARBONATE [Concomitant]
  12. VITAMIN D3 [Concomitant]
  13. FLAXSEED OIL [Concomitant]
  14. OMEPRAZOLE [Concomitant]
  15. ALGIN [Concomitant]
  16. MORPHINE [Concomitant]
  17. OXYCODONE HCL AND ACETAMINOPHEN [Concomitant]
  18. LYRICA [Concomitant]
     Dosage: UNK
  19. SINUS MEDICATION [Concomitant]
     Dosage: UNK
  20. CYMBALTA [Concomitant]
  21. MULTI-VITAMINS [Concomitant]
  22. ASCORBIC ACID [Concomitant]

REACTIONS (10)
  - CHILLS [None]
  - FALL [None]
  - FATIGUE [None]
  - GAIT DISTURBANCE [None]
  - HALLUCINATION, VISUAL [None]
  - HEADACHE [None]
  - LOSS OF CONSCIOUSNESS [None]
  - MULTIPLE SCLEROSIS RELAPSE [None]
  - NAUSEA [None]
  - PSYCHOTIC DISORDER [None]
